FAERS Safety Report 8446951-2 (Version None)
Quarter: 2012Q2

REPORT INFORMATION
  Report Type: 
  Country: None (occurrence: None)
  Receive Date: 20120613
  Receipt Date: 20120613
  Transmission Date: 20120825
  Serious: Yes (Other)
  Sender: FDA-Public Use
  Company Number: None

PATIENT
  Age: 22 Year
  Sex: Female

DRUGS (4)
  1. SEROQUEL [Concomitant]
  2. ATIVAN [Suspect]
     Indication: ANXIETY
     Dosage: 0.5MG, 3 TIMES A DAY, PO
     Route: 048
     Dates: start: 20120301, end: 20120611
  3. PAXAL [Concomitant]
  4. XANAX [Concomitant]

REACTIONS (1)
  - PHOTOPHOBIA [None]
